FAERS Safety Report 20419622 (Version 2)
Quarter: 2022Q1

REPORT INFORMATION
  Report Type: Spontaneous
  Country: JP (occurrence: JP)
  Receive Date: 20220203
  Receipt Date: 20220218
  Transmission Date: 20220423
  Serious: Yes (Hospitalization)
  Sender: FDA-Public Use
  Company Number: JP-TEVA-2022-JP-2003294

PATIENT
  Age: 23 Year
  Sex: Male
  Weight: 61 kg

DRUGS (1)
  1. MINOCYCLINE [Suspect]
     Active Substance: MINOCYCLINE HYDROCHLORIDE
     Indication: Acne
     Dosage: 100 MILLIGRAM DAILY;
     Route: 065

REACTIONS (9)
  - Polyarteritis nodosa [Recovered/Resolved]
  - Hypertension [Recovered/Resolved]
  - Arthralgia [Recovered/Resolved]
  - Renal impairment [Recovered/Resolved]
  - Left ventricular hypertrophy [Recovered/Resolved]
  - Renal infarct [Recovered/Resolved]
  - Renovascular hypertension [Recovered/Resolved]
  - Renal aneurysm [Recovered/Resolved]
  - Retinal haemorrhage [Recovered/Resolved]
